FAERS Safety Report 6292972-8 (Version None)
Quarter: 2009Q3

REPORT INFORMATION
  Report Type: 
  Country: None (occurrence: None)
  Receive Date: 20090729
  Receipt Date: 20090724
  Transmission Date: 20100115
  Serious: Yes (Hospitalization)
  Sender: FDA-Public Use
  Company Number: THQ2009A03618

PATIENT
  Age: 60 Year
  Sex: Male

DRUGS (10)
  1. PIOGLITAZONE HCL [Suspect]
     Indication: TYPE 2 DIABETES MELLITUS
     Dosage: 45 MG (45 MG, 1 IN 1 D) PER ORAL
     Route: 048
     Dates: start: 20090130, end: 20090607
  2. EXENATIDE LONG ACTING RELEASE 2 MG [Suspect]
     Indication: TYPE 2 DIABETES MELLITUS
     Dosage: 2 MG (2 MG, 1 IN 1 WK) SUBCUTANEOUS
     Route: 058
     Dates: start: 20090129, end: 20090604
  3. TORSEMIDE [Concomitant]
  4. SLOW-K [Concomitant]
  5. CAFFEINE, PARACETAMOL, DIPHENHYDRAMINE HYDROCHLORIDE, DEXTROPROPOXYPHE [Concomitant]
  6. LISINOPRIL [Concomitant]
  7. MOXYPEN (AMOXICILLIN TRIHYDRATE) [Concomitant]
  8. UNREPORTED MEDICATION [Concomitant]
  9. ZEMAX [Concomitant]
  10. ADCO AMOCRAN [Concomitant]

REACTIONS (12)
  - BLOOD AMYLASE DECREASED [None]
  - BLOOD CREATINE PHOSPHOKINASE INCREASED [None]
  - BLOOD CREATININE INCREASED [None]
  - BLOOD POTASSIUM INCREASED [None]
  - DEHYDRATION [None]
  - DIARRHOEA [None]
  - FIBRIN D DIMER INCREASED [None]
  - GASTROENTERITIS [None]
  - NEUTROPHIL COUNT INCREASED [None]
  - PLATELET COUNT INCREASED [None]
  - TROPONIN T INCREASED [None]
  - WHITE BLOOD CELL COUNT INCREASED [None]
